FAERS Safety Report 6549868-3 (Version None)
Quarter: 2010Q1

REPORT INFORMATION
  Report Type: 
  Country: None (occurrence: None)
  Receive Date: 20100125
  Receipt Date: 20100120
  Transmission Date: 20100710
  Serious: Yes (Death, Hospitalization)
  Sender: FDA-Public Use
  Company Number: ES-ROCHE-680607

PATIENT
  Sex: Male
  Weight: 72 kg

DRUGS (2)
  1. CAPECITABINE [Suspect]
     Dosage: ON DAYS 1-14
     Route: 048
     Dates: start: 20091228, end: 20091228
  2. IRINOTECAN HCL [Suspect]
     Dosage: LAST DOSE PRIOR TO SAE: 28 DEC 2009, FORM INFUSION
     Route: 042
     Dates: start: 20091228, end: 20091228

REACTIONS (9)
  - ACUTE PRERENAL FAILURE [None]
  - ASTHENIA [None]
  - BLOOD PH DECREASED [None]
  - CARDIO-RESPIRATORY ARREST [None]
  - DEHYDRATION [None]
  - DIARRHOEA [None]
  - DYSPNOEA [None]
  - HYPOTENSION [None]
  - VOMITING [None]
